FAERS Safety Report 14432611 (Version 3)
Quarter: 2021Q3

REPORT INFORMATION
  Report Type: Other
  Country: FR (occurrence: FR)
  Receive Date: 20180124
  Receipt Date: 20210702
  Transmission Date: 20211014
  Serious: Yes (Hospitalization)
  Sender: FDA-Public Use
  Company Number: FR-ALSI-201800055

PATIENT
  Age: 25 Year
  Sex: Male

DRUGS (1)
  1. NITROUS OXIDE. [Suspect]
     Active Substance: NITROUS OXIDE
     Indication: SUBSTANCE ABUSE
     Route: 055

REACTIONS (6)
  - Myelitis [Recovered/Resolved]
  - Balance disorder [Recovered/Resolved]
  - Dysaesthesia [Recovered/Resolved]
  - Hypoaesthesia [Recovered/Resolved]
  - Myelopathy [Recovered/Resolved]
  - Ataxia [Recovered/Resolved]
